FAERS Safety Report 24426796 (Version 1)
Quarter: 2024Q4

REPORT INFORMATION
  Report Type: Spontaneous
  Country: DK (occurrence: DK)
  Receive Date: 20241011
  Receipt Date: 20241011
  Transmission Date: 20250115
  Serious: Yes (Other)
  Sender: RANBAXY
  Company Number: DK-SUN PHARMACEUTICAL INDUSTRIES LTD-2024R1-472944

PATIENT
  Age: 32 Year
  Sex: Female

DRUGS (2)
  1. VALACYCLOVIR [Suspect]
     Active Substance: VALACYCLOVIR HYDROCHLORIDE
     Indication: Herpes simplex
     Dosage: 2 GRAM, DAILY
     Route: 048
  2. ACYCLOVIR [Suspect]
     Active Substance: ACYCLOVIR
     Indication: Herpes simplex
     Dosage: 30 MILLIGRAM/KILOGRAM, DAILY
     Route: 042

REACTIONS (1)
  - Disease recurrence [Unknown]
